FAERS Safety Report 8154177-5 (Version None)
Quarter: 2012Q1

REPORT INFORMATION
  Report Type: 
  Country: None (occurrence: None)
  Receive Date: 20120221
  Receipt Date: 20120217
  Transmission Date: 20120608
  Serious: Yes (Hospitalization, Other)
  Sender: FDA-Public Use
  Company Number: US-PFIZER INC-2012019914

PATIENT
  Sex: Male
  Weight: 68.5 kg

DRUGS (6)
  1. LYRICA [Suspect]
     Dosage: 150 MG, DAILY
     Route: 048
     Dates: start: 20111201
  2. LYRICA [Suspect]
     Indication: NEURALGIA
     Dosage: 100 MG, 1X/DAY
     Route: 048
     Dates: start: 20060101, end: 20070101
  3. LYRICA [Suspect]
     Indication: NEUROPATHY PERIPHERAL
     Dosage: 400 MG, 1X/DAY
     Route: 048
     Dates: start: 20070101, end: 20110101
  4. MIRTAZAPINE [Concomitant]
     Dosage: 30 MG, 1X/DAY
  5. OXYCODONE [Concomitant]
     Indication: NECK INJURY
     Dosage: 210 MG, DAILY
  6. LYRICA [Suspect]
     Dosage: 300 MG, 1X/DAY
     Route: 048
     Dates: start: 20110101, end: 20111201

REACTIONS (10)
  - VOMITING [None]
  - DIARRHOEA [None]
  - CHILLS [None]
  - FATIGUE [None]
  - DEHYDRATION [None]
  - MALAISE [None]
  - HYPERTENSION [None]
  - GASTRIC DISORDER [None]
  - NAUSEA [None]
  - ABDOMINAL PAIN [None]
